FAERS Safety Report 18096853 (Version 2)
Quarter: 2020Q3

REPORT INFORMATION
  Report Type: Spontaneous
  Country: FR (occurrence: FR)
  Receive Date: 20200731
  Receipt Date: 20200807
  Transmission Date: 20201103
  Serious: Yes (Death, Hospitalization, Other)
  Sender: FDA-Public Use
  Company Number: FR-PFIZER INC-2020288588

PATIENT
  Age: 30 Year
  Sex: Female

DRUGS (7)
  1. FLUOXETINE [Concomitant]
     Active Substance: FLUOXETINE HYDROCHLORIDE
     Dosage: UNK
  2. METHYLPREDNISOLONE. [Suspect]
     Active Substance: METHYLPREDNISOLONE
     Indication: DEMYELINATION
     Dosage: UNK
     Route: 065
  3. PREDNISOLONE. [Suspect]
     Active Substance: PREDNISOLONE
     Indication: DEMYELINATION
     Dosage: UNK
     Route: 048
  4. RITUXIMAB. [Suspect]
     Active Substance: RITUXIMAB
     Dosage: 1 G
     Route: 042
  5. RITUXIMAB. [Suspect]
     Active Substance: RITUXIMAB
     Dosage: 1 G, CYCLIC (1G EVERY 6 MONTHS)
     Route: 042
     Dates: start: 201606, end: 201706
  6. RITUXIMAB. [Suspect]
     Active Substance: RITUXIMAB
     Indication: DEMYELINATION
     Dosage: 1 G
     Route: 042
     Dates: start: 201803
  7. RITUXIMAB. [Suspect]
     Active Substance: RITUXIMAB
     Dosage: 375 MG/M2 (FOUR INFUSIONS)
     Route: 042
     Dates: start: 201507

REACTIONS (12)
  - Dysarthria [Unknown]
  - Meningitis coxsackie viral [Fatal]
  - Ataxia [Unknown]
  - Coxsackie viral infection [Fatal]
  - Sepsis [Unknown]
  - Vomiting [Unknown]
  - Pregnancy [Unknown]
  - Off label use [Unknown]
  - Intentional product use issue [Unknown]
  - Exposure during pregnancy [Unknown]
  - Dysmetria [Unknown]
  - Viral myocarditis [Fatal]

NARRATIVE: CASE EVENT DATE: 201903
